FAERS Safety Report 11864298 (Version 1)
Quarter: 2015Q4

REPORT INFORMATION
  Report Type: Spontaneous
  Country: US (occurrence: US)
  Receive Date: 20151223
  Receipt Date: 20151223
  Transmission Date: 20160305
  Serious: No
  Sender: FDA-Public Use
  Company Number: US-ABBVIE-15P-163-1519821-00

PATIENT
  Sex: Female

DRUGS (1)
  1. LUPRON DEPOT [Suspect]
     Active Substance: LEUPROLIDE ACETATE
     Indication: PRODUCT USED FOR UNKNOWN INDICATION
     Route: 050
     Dates: start: 20151204, end: 20151204

REACTIONS (2)
  - Injury associated with device [Not Recovered/Not Resolved]
  - Occupational exposure to product [Not Recovered/Not Resolved]

NARRATIVE: CASE EVENT DATE: 20151204
